FAERS Safety Report 9459930 (Version 1)
Quarter: 2013Q3

REPORT INFORMATION
  Report Type: Spontaneous
  Country: US (occurrence: None)
  Receive Date: 20130812
  Receipt Date: 20130812
  Transmission Date: 20140515
  Serious: Yes (Death, Hospitalization)
  Sender: FDA-Public Use
  Company Number: 2013-334

PATIENT
  Age: 73 Year
  Sex: Male

DRUGS (1)
  1. FAZACLO (CLOZAPINE, USP) ODT (ORAL DISINTEGRATING TABLET) [Suspect]
     Route: 048
     Dates: start: 20130521

REACTIONS (1)
  - Hospitalisation [None]
